FAERS Safety Report 24803392 (Version 1)
Quarter: 2025Q1

REPORT INFORMATION
  Report Type: Spontaneous
  Country: TR (occurrence: TR)
  Receive Date: 20250103
  Receipt Date: 20250103
  Transmission Date: 20250409
  Serious: No
  Sender: ALKEM
  Company Number: TR-ALKEM LABORATORIES LIMITED-TR-ALKEM-2023-17202

PATIENT
  Age: 18 Year
  Sex: Female

DRUGS (4)
  1. TACROLIMUS [Suspect]
     Active Substance: TACROLIMUS
     Indication: Immunosuppressant drug therapy
     Dosage: UNK, QD, (0.2-0.3 MG/KG) (INITIAL) (DAILY)
     Route: 048
  2. TACROLIMUS [Suspect]
     Active Substance: TACROLIMUS
     Dosage: UNK, BID, (CAPSULES, EVERY 12 H)
     Route: 048
  3. PREDNISONE [Concomitant]
     Active Substance: PREDNISONE
     Indication: Immunosuppressant drug therapy
     Dosage: 60 MILLIGRAM/SQ. METER, QD
     Route: 065
  4. PREDNISONE [Concomitant]
     Active Substance: PREDNISONE
     Route: 065

REACTIONS (2)
  - Palpitations [Recovered/Resolved]
  - Sinus tachycardia [Recovered/Resolved]
